FAERS Safety Report 4519735-5 (Version None)
Quarter: 2004Q4

REPORT INFORMATION
  Report Type: 
  Country: None (occurrence: None)
  Receive Date: 20041203
  Receipt Date: 20041203
  Transmission Date: 20050328
  Serious: Yes (Other)
  Sender: FDA-Public Use
  Company Number: None

PATIENT
  Age: 37 Year
  Sex: Male
  Weight: 78.9259 kg

DRUGS (1)
  1. INTERLEUKIN-2 (IL-2) [Suspect]
     Indication: METASTATIC MALIGNANT MELANOMA
     Dosage: 720,000 IU/KG  IV BOLUS  Q. 8 HRS/13 DOSES CYCLE
     Route: 040
     Dates: start: 20041013, end: 20041101

REACTIONS (1)
  - RED BLOOD CELLS SEMEN POSITIVE [None]
